FAERS Safety Report 20627043 (Version 4)
Quarter: 2022Q2

REPORT INFORMATION
  Report Type: Spontaneous
  Country: US (occurrence: US)
  Receive Date: 20220323
  Receipt Date: 20220512
  Transmission Date: 20220721
  Serious: Yes (Other)
  Sender: FDA-Public Use
  Company Number: US-Blueprint Medicines Corporation-SP-US-2022-000752

PATIENT
  Age: 70 Year
  Sex: Male

DRUGS (2)
  1. AYVAKIT [Suspect]
     Active Substance: AVAPRITINIB
     Indication: Gastrointestinal stromal tumour
     Route: 048
     Dates: start: 20220304
  2. AYVAKIT [Suspect]
     Active Substance: AVAPRITINIB
     Route: 048
     Dates: start: 20220324

REACTIONS (11)
  - Ascites [Unknown]
  - Weight increased [Unknown]
  - Waist circumference increased [Unknown]
  - Fluid retention [Not Recovered/Not Resolved]
  - Nausea [Unknown]
  - Decreased appetite [Recovered/Resolved]
  - Face oedema [Not Recovered/Not Resolved]
  - Localised oedema [Not Recovered/Not Resolved]
  - Oedema peripheral [Not Recovered/Not Resolved]
  - Rash [Not Recovered/Not Resolved]
  - Gastroenteritis viral [Not Recovered/Not Resolved]

NARRATIVE: CASE EVENT DATE: 20220324
